FAERS Safety Report 4927879-9 (Version None)
Quarter: 2006Q1

REPORT INFORMATION
  Report Type: 
  Country: None (occurrence: None)
  Receive Date: 20060228
  Receipt Date: 20051219
  Transmission Date: 20060701
  Serious: Yes (Other)
  Sender: FDA-Public Use
  Company Number: NL-GLAXOSMITHKLINE-B0404435A

PATIENT
  Age: 71 Year
  Sex: Male

DRUGS (5)
  1. FLUTICASONE PROPIONATE [Suspect]
     Indication: BRONCHOSPASM
     Dates: start: 20051107
  2. ACETYLSALICYLIC ACID SRT [Concomitant]
     Dosage: 80MG PER DAY
     Dates: start: 19970101
  3. GLUCOPHAGE [Concomitant]
     Dosage: 1000MG PER DAY
     Dates: start: 20020101
  4. TOLBUTAMIDE [Concomitant]
     Dosage: 1000MG PER DAY
     Dates: start: 19960101
  5. SIMVASTATIN [Concomitant]
     Dosage: 20MG PER DAY
     Dates: start: 20040101

REACTIONS (1)
  - ECZEMA [None]
